FAERS Safety Report 5932847-4 (Version None)
Quarter: 2008Q4

REPORT INFORMATION
  Report Type: 
  Country: None (occurrence: None)
  Receive Date: 20081028
  Receipt Date: 20081020
  Transmission Date: 20090506
  Serious: Yes (Hospitalization)
  Sender: FDA-Public Use
  Company Number: US-GILEAD-2008-0017722

PATIENT
  Sex: Female
  Weight: 64.468 kg

DRUGS (12)
  1. LETAIRIS [Suspect]
     Indication: PULMONARY HYPERTENSION
     Route: 048
     Dates: start: 20080228
  2. KLOR-CON M20 [Concomitant]
     Route: 048
  3. INDERAL [Concomitant]
     Route: 048
  4. PLAVIX [Concomitant]
     Route: 048
  5. NEXIUM [Concomitant]
     Route: 048
  6. SIMVASTATIN [Concomitant]
     Route: 048
  7. DIAZEPAM [Concomitant]
     Route: 048
  8. SUCRALFATE [Concomitant]
     Route: 048
  9. NASACORT AER [Concomitant]
     Dosage: 55MCG/AC
  10. CENTRUM SILVER [Concomitant]
  11. LASIX [Concomitant]
  12. LASIX [Concomitant]

REACTIONS (2)
  - BRONCHITIS [None]
  - SWELLING [None]
